FAERS Safety Report 11072086 (Version 9)
Quarter: 2016Q2

REPORT INFORMATION
  Report Type: Spontaneous
  Country: BR (occurrence: BR)
  Receive Date: 20150428
  Receipt Date: 20160524
  Transmission Date: 20160815
  Serious: Yes (Other)
  Sender: FDA-Public Use
  Company Number: BR-PFIZER INC-2014075923

PATIENT
  Age: 60 Year
  Sex: Male
  Weight: 72 kg

DRUGS (13)
  1. SUTENT [Suspect]
     Active Substance: SUNITINIB MALATE
     Dosage: UNK
  2. NOVALGIN [Concomitant]
     Active Substance: METAMIZOLE SODIUM
     Indication: PAIN
     Dosage: 10 MG, AS NEEDED
  3. THIAMINE HYDROCHLORIDE. [Concomitant]
     Active Substance: THIAMINE HYDROCHLORIDE
     Dosage: 1 TABLET, DAILY (IN THE MORNING)
  4. SUTENT [Suspect]
     Active Substance: SUNITINIB MALATE
     Dosage: 50 MG, CYCLIC 2 PER 1
  5. UREA. [Concomitant]
     Active Substance: UREA
  6. OMEPRAZOLE. [Concomitant]
     Active Substance: OMEPRAZOLE
     Indication: PROPHYLAXIS AGAINST GASTROINTESTINAL ULCER
     Dosage: 20 MG, 1X/DAY (IN THE MORNING - FASTING)
  7. SUTENT [Suspect]
     Active Substance: SUNITINIB MALATE
     Indication: METASTATIC RENAL CELL CARCINOMA
     Dosage: 50 MG, DAILY, CYCLE 4/2
     Route: 048
     Dates: start: 20131108
  8. SUTENT [Suspect]
     Active Substance: SUNITINIB MALATE
     Dosage: UNK UNK, CYCLIC
  9. SIMVASTATIN. [Concomitant]
     Active Substance: SIMVASTATIN
     Dosage: 20 MG, 1 TABLET AT NIGHT
  10. SUTENT [Suspect]
     Active Substance: SUNITINIB MALATE
     Dosage: UNK
  11. SUTENT [Suspect]
     Active Substance: SUNITINIB MALATE
     Dosage: UNK
  12. DIAZEPAM. [Concomitant]
     Active Substance: DIAZEPAM
     Dosage: 10 MG, 1X/DAY
  13. PURAN [Concomitant]
     Active Substance: LEVOTHYROXINE SODIUM
     Indication: THYROID DISORDER
     Dosage: 50 UG, 1 TABLET IN THE MORNING (FASTING)

REACTIONS (44)
  - Testicular mass [Unknown]
  - Diarrhoea [Unknown]
  - Decreased appetite [Not Recovered/Not Resolved]
  - Fatigue [Not Recovered/Not Resolved]
  - Dyspnoea [Unknown]
  - Palmar-plantar erythrodysaesthesia syndrome [Not Recovered/Not Resolved]
  - Disease progression [Unknown]
  - Metastatic renal cell carcinoma [Unknown]
  - Pain [Unknown]
  - Yellow skin [Unknown]
  - Oral pain [Not Recovered/Not Resolved]
  - Blood glucose decreased [Unknown]
  - Umbilical haemorrhage [Unknown]
  - Incisional hernia [Unknown]
  - Abdominal discomfort [Unknown]
  - Mobility decreased [Not Recovered/Not Resolved]
  - Gingival pain [Not Recovered/Not Resolved]
  - Rash [Unknown]
  - Thyroid disorder [Unknown]
  - Blood cholesterol abnormal [Unknown]
  - Asthenia [Recovering/Resolving]
  - Gait disturbance [Not Recovered/Not Resolved]
  - Skin fissures [Not Recovered/Not Resolved]
  - Pain in extremity [Not Recovered/Not Resolved]
  - Wound [Unknown]
  - Blood pressure increased [Unknown]
  - Memory impairment [Unknown]
  - Penis injury [Not Recovered/Not Resolved]
  - Skin exfoliation [Not Recovered/Not Resolved]
  - Hypogeusia [Not Recovered/Not Resolved]
  - Eczema [Unknown]
  - Flatulence [Unknown]
  - Inguinal hernia [Unknown]
  - Infarction [Unknown]
  - Procedural pain [Unknown]
  - Peripheral swelling [Unknown]
  - Tooth loss [Unknown]
  - Mouth injury [Unknown]
  - Skin sensitisation [Unknown]
  - Oral mucosal blistering [Unknown]
  - Vomiting [Unknown]
  - Aphthous ulcer [Unknown]
  - Pyrexia [Unknown]
  - Anaemia [Unknown]

NARRATIVE: CASE EVENT DATE: 2014
